FAERS Safety Report 14951360 (Version 1)
Quarter: 2018Q2

REPORT INFORMATION
  Report Type: Spontaneous
  Country: US (occurrence: US)
  Receive Date: 20180530
  Receipt Date: 20180530
  Transmission Date: 20180711
  Serious: Yes (Hospitalization)
  Sender: FDA-Public Use
  Company Number: US-ORPHAN EUROPE-2048665

PATIENT
  Age: 16 Year
  Sex: Female

DRUGS (1)
  1. CARBAGLU [Suspect]
     Active Substance: CARGLUMIC ACID
     Indication: METABOLIC DISORDER
     Dates: start: 20140624

REACTIONS (2)
  - Vomiting [Unknown]
  - Gastric infection [Unknown]

NARRATIVE: CASE EVENT DATE: 201805
